FAERS Safety Report 4279701-4 (Version None)
Quarter: 2004Q1

REPORT INFORMATION
  Report Type: 
  Country: None (occurrence: None)
  Receive Date: 20040127
  Receipt Date: 20040119
  Transmission Date: 20041129
  Serious: Yes (Hospitalization)
  Sender: FDA-Public Use
  Company Number: PHRM2004FR00557

PATIENT
  Age: 83 Year
  Sex: Female
  Weight: 58 kg

DRUGS (4)
  1. COTAREG [Suspect]
     Dosage: 1 DF, QD
     Route: 048
     Dates: end: 20031119
  2. LAROXYL [Suspect]
     Dosage: 25 MG , DAILY
     Route: 048
     Dates: end: 20031119
  3. DEROXAT [Suspect]
     Dosage: 20 MG, QD
     Route: 048
     Dates: start: 20031030
  4. TEMESTA [Suspect]
     Dosage: 3 MG, DAILY
     Route: 048

REACTIONS (10)
  - ASTHENIA [None]
  - CONTUSION [None]
  - CREATININE RENAL CLEARANCE DECREASED [None]
  - DIZZINESS [None]
  - DRUG INTERACTION [None]
  - FALL [None]
  - HUMERUS FRACTURE [None]
  - HYPOKALAEMIA [None]
  - HYPOTENSION [None]
  - ORTHOSTATIC HYPOTENSION [None]
